FAERS Safety Report 9586649 (Version 2)
Quarter: 2013Q4

REPORT INFORMATION
  Report Type: Spontaneous
  Country: PE (occurrence: PE)
  Receive Date: 20131003
  Receipt Date: 20131031
  Transmission Date: 20140711
  Serious: Yes (Death)
  Sender: FDA-Public Use
  Company Number: PE-PFIZER INC-2013283513

PATIENT
  Age: 69 Year
  Sex: Female

DRUGS (1)
  1. NORVASTOR [Suspect]
     Dosage: 5MG/10MG, UNK
     Route: 048

REACTIONS (1)
  - Metastasis [Fatal]
